FAERS Safety Report 6993738-3 (Version None)
Quarter: 2010Q3

REPORT INFORMATION
  Report Type: 
  Country: None (occurrence: None)
  Receive Date: 20100917
  Receipt Date: 20100701
  Transmission Date: 20110219
  Serious: No
  Sender: FDA-Public Use
  Company Number: US-ASTRAZENECA-2007UW25193

PATIENT
  Age: 17780 Day
  Sex: Female
  Weight: 90.7 kg

DRUGS (14)
  1. SEROQUEL [Suspect]
     Indication: SLEEP DISORDER
     Route: 048
     Dates: start: 20010924, end: 20061216
  2. SEROQUEL [Suspect]
     Indication: DEPRESSION
     Route: 048
     Dates: start: 20010924, end: 20061216
  3. SEROQUEL [Suspect]
     Indication: BIPOLAR DISORDER
     Route: 048
     Dates: start: 20010924, end: 20061216
  4. SEROQUEL [Suspect]
     Indication: INSOMNIA
     Route: 048
     Dates: start: 20010924, end: 20061216
  5. SEROQUEL [Suspect]
     Route: 048
     Dates: start: 20020101, end: 20070701
  6. SEROQUEL [Suspect]
     Route: 048
     Dates: start: 20020101, end: 20070701
  7. SEROQUEL [Suspect]
     Route: 048
     Dates: start: 20020101, end: 20070701
  8. SEROQUEL [Suspect]
     Route: 048
     Dates: start: 20020101, end: 20070701
  9. RISPERDAL [Concomitant]
     Indication: HALLUCINATION
     Dates: start: 20031103
  10. RISPERDAL [Concomitant]
     Indication: INSOMNIA
     Dates: start: 20031103
  11. ABILIFY [Concomitant]
  12. HALDOL [Concomitant]
  13. NAVANE [Concomitant]
  14. CITALOPRAM HYDROBROMIDE [Concomitant]

REACTIONS (5)
  - ADVERSE DRUG REACTION [None]
  - BLOOD CHOLESTEROL INCREASED [None]
  - HYPERLIPIDAEMIA [None]
  - OBESITY [None]
  - TYPE 2 DIABETES MELLITUS [None]
